FAERS Safety Report 9833148 (Version 1)
Quarter: 2014Q1

REPORT INFORMATION
  Report Type: Report from Study
  Country: US (occurrence: US)
  Receive Date: 20140121
  Receipt Date: 20140121
  Transmission Date: 20141002
  Serious: Yes (Other)
  Sender: FDA-Public Use
  Company Number: US-ABBVIE-14P-163-1189863-00

PATIENT
  Age: 61 Year
  Sex: Male

DRUGS (2)
  1. HUMIRA [Suspect]
     Indication: PSORIASIS
     Dates: start: 201112
  2. CEPHALEXIN [Suspect]
     Indication: URINARY TRACT INFECTION

REACTIONS (14)
  - Exostosis [Not Recovered/Not Resolved]
  - Tendon injury [Not Recovered/Not Resolved]
  - Nausea [Recovering/Resolving]
  - Abdominal pain [Not Recovered/Not Resolved]
  - Back pain [Unknown]
  - Constipation [Not Recovered/Not Resolved]
  - Accident at work [Unknown]
  - Laceration [Unknown]
  - Cough [Not Recovered/Not Resolved]
  - Aortic aneurysm [Unknown]
  - Urinary tract infection [Not Recovered/Not Resolved]
  - Adverse drug reaction [Unknown]
  - Gastrointestinal infection [Not Recovered/Not Resolved]
  - Weight decreased [Not Recovered/Not Resolved]
